FAERS Safety Report 4530391-2 (Version None)
Quarter: 2004Q4

REPORT INFORMATION
  Report Type: 
  Country: None (occurrence: None)
  Receive Date: 20041215
  Receipt Date: 20041208
  Transmission Date: 20050328
  Serious: Yes (Hospitalization)
  Sender: FDA-Public Use
  Company Number: TOR 2004-0035

PATIENT
  Age: 76 Year
  Sex: Female

DRUGS (2)
  1. FARESTON [Suspect]
     Indication: BREAST CANCER
     Dosage: SEE IMAGE
     Route: 048
     Dates: start: 20020110, end: 20021031
  2. FARESTON [Suspect]
     Indication: BREAST CANCER
     Dosage: SEE IMAGE
     Route: 048
     Dates: start: 20040331

REACTIONS (5)
  - ABDOMINAL DISCOMFORT [None]
  - ANAEMIA [None]
  - ENDOMETRIAL HYPERTROPHY [None]
  - GENITAL HAEMORRHAGE [None]
  - HEPATIC FUNCTION ABNORMAL [None]
